FAERS Safety Report 20492902 (Version 1)
Quarter: 2022Q1

REPORT INFORMATION
  Report Type: Spontaneous
  Country: US (occurrence: US)
  Receive Date: 20220219
  Receipt Date: 20220219
  Transmission Date: 20220423
  Serious: No
  Sender: FDA-Public Use
  Company Number: US-BIOGEN-2022BI01094210

PATIENT
  Age: 51 Year
  Sex: Female

DRUGS (2)
  1. VUMERITY [Suspect]
     Active Substance: DIROXIMEL FUMARATE
     Indication: Multiple sclerosis
     Route: 048
     Dates: start: 20220109, end: 20220115
  2. VUMERITY [Suspect]
     Active Substance: DIROXIMEL FUMARATE
     Route: 048
     Dates: start: 20220116

REACTIONS (6)
  - Fatigue [Not Recovered/Not Resolved]
  - Gait disturbance [Not Recovered/Not Resolved]
  - Arthralgia [Unknown]
  - Flushing [Unknown]
  - Hot flush [Unknown]
  - Nausea [Unknown]

NARRATIVE: CASE EVENT DATE: 20220101
